FAERS Safety Report 10605686 (Version 1)
Quarter: 2014Q4

REPORT INFORMATION
  Report Type: Spontaneous
  Country: US (occurrence: US)
  Receive Date: 20141125
  Receipt Date: 20141125
  Transmission Date: 20150529
  Serious: Yes (Life-Threatening, Hospitalization)
  Sender: FDA-Public Use
  Company Number: US-AUROBINDO-AUR-APL-2014-12255

PATIENT
  Age: 17 Year
  Sex: Male

DRUGS (1)
  1. RISPERIDONE 0.5MG TABLETS (ZYDUS) [Suspect]
     Active Substance: RISPERIDONE
     Indication: DEPRESSION
     Dosage: 0.5 MG, UNK
     Route: 065

REACTIONS (8)
  - Muscle rigidity [Recovering/Resolving]
  - Dysstasia [Recovering/Resolving]
  - Activities of daily living impaired [Recovering/Resolving]
  - Neuroleptic malignant syndrome [Recovering/Resolving]
  - Hyperthermia [Recovering/Resolving]
  - Tremor [Recovering/Resolving]
  - Mutism [Recovering/Resolving]
  - Agitation [Unknown]
